FAERS Safety Report 8334415-6 (Version None)
Quarter: 2012Q2

REPORT INFORMATION
  Report Type: 
  Country: None (occurrence: None)
  Receive Date: 20120503
  Receipt Date: 20110407
  Transmission Date: 20120825
  Serious: No
  Sender: FDA-Public Use
  Company Number: US-BAUSCH-2011BL002326

PATIENT
  Age: 79 Year
  Sex: Female

DRUGS (3)
  1. LOTEMAX [Suspect]
     Indication: EYE OEDEMA
     Route: 047
     Dates: start: 20110201, end: 20110201
  2. LOTEMAX [Suspect]
     Route: 047
     Dates: start: 20110201, end: 20110406
  3. RESTASIS [Suspect]
     Indication: DRY EYE
     Route: 047
     Dates: start: 20100101, end: 20110401

REACTIONS (1)
  - VISUAL IMPAIRMENT [None]
